FAERS Safety Report 5015131-5 (Version None)
Quarter: 2006Q2

REPORT INFORMATION
  Report Type: 
  Country: None (occurrence: None)
  Receive Date: 20060414
  Receipt Date: 20051221
  Transmission Date: 20061013
  Serious: No
  Sender: FDA-Public Use
  Company Number: 2005SP001937

PATIENT
  Age: 79 Year
  Sex: Female
  Weight: 70.3075 kg

DRUGS (1)
  1. LUNESTA [Suspect]
     Indication: INSOMNIA
     Dosage: 2 MG;HS;ORAL
     Route: 048
     Dates: start: 20050712, end: 20050713

REACTIONS (5)
  - DECREASED APPETITE [None]
  - DRUG INEFFECTIVE [None]
  - DRY MOUTH [None]
  - DYSGEUSIA [None]
  - INITIAL INSOMNIA [None]
